FAERS Safety Report 7466341-9 (Version None)
Quarter: 2011Q2

REPORT INFORMATION
  Report Type: 
  Country: None (occurrence: None)
  Receive Date: 20110509
  Receipt Date: 20100802
  Transmission Date: 20111010
  Serious: No
  Sender: FDA-Public Use
  Company Number: US-ALEXION-A201000920

PATIENT
  Sex: Female

DRUGS (8)
  1. ATIVAN [Concomitant]
     Dosage: 1 MG, QD
     Route: 048
  2. METHIMAZOLE [Concomitant]
     Dosage: 10 MG, QD
     Route: 048
  3. PERCOCET [Concomitant]
     Indication: PAIN
     Dosage: 5/325 MG, QD
     Route: 048
  4. AMBIEN [Concomitant]
     Indication: INSOMNIA
     Dosage: 1 MG, QD
     Route: 048
  5. ORTHO EVRA [Concomitant]
     Indication: CONTRACEPTION
     Dosage: 150/20 MG, QD
     Route: 062
  6. SOLIRIS [Suspect]
     Indication: PAROXYSMAL NOCTURNAL HAEMOGLOBINURIA
     Dosage: 600 MG, QW
     Route: 042
     Dates: start: 20100720
  7. COUMADIN [Concomitant]
     Indication: THROMBOSIS PROPHYLAXIS
     Dosage: 2.5 MG, QD
     Route: 048
  8. CYMBALTA [Concomitant]
     Dosage: 60 MG, QD

REACTIONS (1)
  - RASH [None]
